FAERS Safety Report 9815090 (Version 1)
Quarter: 2014Q1

REPORT INFORMATION
  Report Type: Spontaneous
  Country: US (occurrence: US)
  Receive Date: 20140114
  Receipt Date: 20140114
  Transmission Date: 20141002
  Serious: Yes (Death)
  Sender: FDA-Public Use
  Company Number: US-PFIZER INC-2014005928

PATIENT
  Age: 72 Year
  Sex: Female

DRUGS (5)
  1. VENLAFAXINE HCL [Suspect]
     Dosage: UNK
     Route: 048
  2. HYDROCODONE W/ACETAMINOPHEN [Suspect]
     Dosage: UNK
     Route: 048
  3. DIAZEPAM [Suspect]
     Dosage: UNK
     Route: 048
  4. ZOLPIDEM [Suspect]
     Dosage: UNK
     Route: 048
  5. TOPIRAMATE [Suspect]
     Dosage: UNK
     Route: 048

REACTIONS (1)
  - Completed suicide [Fatal]
